FAERS Safety Report 10613190 (Version 2)
Quarter: 2014Q4

REPORT INFORMATION
  Report Type: Spontaneous
  Country: JP (occurrence: JP)
  Receive Date: 20141128
  Receipt Date: 20141128
  Transmission Date: 20150529
  Serious: Yes (Other)
  Sender: FDA-Public Use
  Company Number: JP-ROCHE-1490394

PATIENT
  Age: 65 Year
  Sex: Female

DRUGS (8)
  1. HERCEPTIN [Suspect]
     Active Substance: TRASTUZUMAB
     Indication: BREAST CANCER
     Dosage: UNCERTAIN DOSAGE AND THE 3RD
     Route: 041
     Dates: start: 20141016
  2. PERJETA [Suspect]
     Active Substance: PERTUZUMAB
     Route: 041
     Dates: start: 20141106
  3. HERCEPTIN [Suspect]
     Active Substance: TRASTUZUMAB
     Route: 041
     Dates: start: 20141106
  4. PERJETA [Suspect]
     Active Substance: PERTUZUMAB
     Indication: BREAST CANCER
     Dosage: STRENGTH: 420MG/14ML
     Route: 041
     Dates: start: 20140925, end: 20140925
  5. PERJETA [Suspect]
     Active Substance: PERTUZUMAB
     Indication: BREAST CANCER
     Route: 041
     Dates: start: 20141016
  6. HERCEPTIN [Suspect]
     Active Substance: TRASTUZUMAB
     Indication: BREAST CANCER
     Route: 041
     Dates: start: 20140925, end: 20140925
  7. DOCETAXEL. [Suspect]
     Active Substance: DOCETAXEL
     Indication: BREAST CANCER
     Dosage: UNCERTAIN DOSAGE AND THE 3RD
     Route: 041
  8. DOCETAXEL. [Suspect]
     Active Substance: DOCETAXEL
     Route: 041
     Dates: start: 20141106

REACTIONS (3)
  - Pneumonia [Recovering/Resolving]
  - Rash [Recovered/Resolved]
  - Cough [Recovered/Resolved]

NARRATIVE: CASE EVENT DATE: 20141117
